FAERS Safety Report 23439890 (Version 1)
Quarter: 2024Q1

REPORT INFORMATION
  Report Type: Spontaneous
  Country: CA (occurrence: CA)
  Receive Date: 20240124
  Receipt Date: 20240124
  Transmission Date: 20240410
  Serious: Yes (Other)
  Sender: FDA-Public Use
  Company Number: CA-PFIZER INC-202400022586

PATIENT
  Age: 44 Year
  Sex: Female
  Weight: 51 kg

DRUGS (4)
  1. METHOTREXATE SODIUM [Suspect]
     Active Substance: METHOTREXATE SODIUM
     Dosage: 1 DF
     Route: 065
  2. MESALAMINE [Suspect]
     Active Substance: MESALAMINE
     Route: 065
  3. INFLIXIMAB-DYYB [Suspect]
     Active Substance: INFLIXIMAB-DYYB
     Route: 065
  4. PREDNISONE [Suspect]
     Active Substance: PREDNISONE
     Route: 065

REACTIONS (2)
  - Crohn^s disease [Unknown]
  - Drug ineffective [Unknown]
